FAERS Safety Report 5877530-9 (Version None)
Quarter: 2008Q3

REPORT INFORMATION
  Report Type: 
  Country: None (occurrence: None)
  Receive Date: 20080911
  Receipt Date: 20080905
  Transmission Date: 20090109
  Serious: Yes (Other)
  Sender: FDA-Public Use
  Company Number: US-ABBOTT-08P-163-0472089-00

PATIENT
  Age: 24 Year
  Sex: Female

DRUGS (2)
  1. KALETRA [Suspect]
     Indication: ANTIVIRAL TREATMENT
     Dosage: 800/200MG DAILY
     Route: 048
     Dates: start: 20080809, end: 20080818
  2. LAMIVUDINE + ZIDOVUDINE [Suspect]
     Indication: ANTIVIRAL TREATMENT
     Dosage: 600/300MG DAILY
     Route: 048
     Dates: start: 20080809, end: 20080818

REACTIONS (2)
  - MATERNAL HYPERTENSION AFFECTING FOETUS [None]
  - STILLBIRTH [None]
